FAERS Safety Report 12764060 (Version 1)
Quarter: 2016Q3

REPORT INFORMATION
  Report Type: Not Available
  Country: None (occurrence: US)
  Receive Date: 20160920
  Receipt Date: 20160920
  Transmission Date: 20161109
  Serious: No
  Sender: FDA-Public Use
  Company Number: US-AKORN-38212

PATIENT
  Age: 64 Year
  Sex: Female

DRUGS (1)
  1. ATROPINE SULFATE 1% [Suspect]
     Active Substance: ATROPINE SULFATE

REACTIONS (3)
  - Vision blurred [Unknown]
  - Photophobia [Unknown]
  - Drug effect prolonged [Not Recovered/Not Resolved]

NARRATIVE: CASE EVENT DATE: 20160614
